FAERS Safety Report 12171687 (Version 1)
Quarter: 2016Q1

REPORT INFORMATION
  Report Type: Spontaneous
  Country: IN (occurrence: IN)
  Receive Date: 20160311
  Receipt Date: 20160311
  Transmission Date: 20160526
  Serious: Yes (Hospitalization, Other)
  Sender: FDA-Public Use
  Company Number: IN-BAYER-2016-042589

PATIENT
  Age: 85 Year
  Sex: Female

DRUGS (1)
  1. NUBLEXA [Suspect]
     Active Substance: REGORAFENIB
     Dosage: UNK
     Route: 048
     Dates: end: 2016

REACTIONS (7)
  - Skin discolouration [None]
  - Blister [None]
  - Gait disturbance [None]
  - Seizure [None]
  - Burning sensation [Not Recovered/Not Resolved]
  - Erythema [None]
  - Hypertension [None]

NARRATIVE: CASE EVENT DATE: 20160227
